FAERS Safety Report 18996637 (Version 1)
Quarter: 2021Q1

REPORT INFORMATION
  Report Type: Spontaneous
  Country: GB (occurrence: GB)
  Receive Date: 20210311
  Receipt Date: 20210311
  Transmission Date: 20210420
  Serious: Yes (Hospitalization, Disabling, Other)
  Sender: FDA-Public Use
  Company Number: GB-EMCURE PHARMACEUTICALS LTD-2021-EPL-000655

PATIENT
  Age: 5 Year
  Sex: Male

DRUGS (2)
  1. TRANEXAMIC ACID. [Suspect]
     Active Substance: TRANEXAMIC ACID
     Indication: SURGERY
     Dosage: 10 MILLIGRAM PER KILOGRAM,ON INDUCTION AND THEN 10 MG/KG/HOUR, INTRAVENOUS BOLUS
     Route: 040
  2. TRANEXAMIC ACID. [Suspect]
     Active Substance: TRANEXAMIC ACID
     Indication: HAEMORRHAGE PROPHYLAXIS
     Dosage: 10 MG/KG ON INDUCTION AND THEN 10 MG/KG/HOUR
     Route: 040

REACTIONS (6)
  - Hemiparesis [Recovered/Resolved]
  - Drug ineffective [Unknown]
  - Blindness unilateral [Not Recovered/Not Resolved]
  - Blindness unilateral [Recovered/Resolved]
  - Haemorrhage intracranial [Unknown]
  - Retinal artery occlusion [Not Recovered/Not Resolved]
